FAERS Safety Report 17100715 (Version 1)
Quarter: 2019Q4

REPORT INFORMATION
  Report Type: Spontaneous
  Country: PT (occurrence: PT)
  Receive Date: 20191202
  Receipt Date: 20191202
  Transmission Date: 20200122
  Serious: Yes (Other)
  Sender: FDA-Public Use
  Company Number: PT-MYLANLABS-2019M1115855

PATIENT
  Age: 50 Year
  Sex: Female
  Weight: 95 kg

DRUGS (1)
  1. GLATIRAMER [Suspect]
     Active Substance: GLATIRAMER
     Indication: RELAPSING-REMITTING MULTIPLE SCLEROSIS
     Dosage: 120 MILLIGRAM, QW (40 MG SC 3X/ SEMANA)
     Route: 058
     Dates: end: 20190529

REACTIONS (2)
  - Rash maculo-papular [Recovered/Resolved]
  - Skin lesion inflammation [Recovered/Resolved]

NARRATIVE: CASE EVENT DATE: 20190527
